FAERS Safety Report 13888040 (Version 1)
Quarter: 2017Q3

REPORT INFORMATION
  Report Type: Spontaneous
  Country: IR (occurrence: IR)
  Receive Date: 20170821
  Receipt Date: 20170821
  Transmission Date: 20171127
  Serious: Yes (Hospitalization, Other)
  Sender: FDA-Public Use
  Company Number: IR-PFIZER INC-2017348988

PATIENT
  Age: 64 Year
  Sex: Female

DRUGS (1)
  1. SUTENT [Suspect]
     Active Substance: SUNITINIB MALATE
     Indication: METASTASES TO LUNG
     Dosage: 50 MG, CYCLIC (DAILY FOR 4 WEEKS FOLLOWED BY 2 WEEKS OFF)

REACTIONS (3)
  - Thrombocytopenia [Recovered/Resolved]
  - Immune thrombocytopenic purpura [Recovered/Resolved]
  - Leukopenia [Unknown]
